FAERS Safety Report 8499228-3 (Version None)
Quarter: 2012Q2

REPORT INFORMATION
  Report Type: 
  Country: None (occurrence: None)
  Receive Date: 20120405
  Receipt Date: 20110401
  Transmission Date: 20120825
  Serious: Yes (Other)
  Sender: FDA-Public Use
  Company Number: PHHY2010US88926

PATIENT
  Sex: Female

DRUGS (3)
  1. RECLAST [Suspect]
     Dosage: 5 MG/100 ML, INTRAVENOUS
     Route: 042
     Dates: start: 20101222
  2. FORTICAL [Suspect]
  3. NARCOTICS [Concomitant]

REACTIONS (6)
  - ARTHRALGIA [None]
  - MUSCULOSKELETAL PAIN [None]
  - GROIN PAIN [None]
  - ATRIAL FIBRILLATION [None]
  - PAIN [None]
  - GAIT DISTURBANCE [None]
